FAERS Safety Report 10343249 (Version 2)
Quarter: 2014Q3

REPORT INFORMATION
  Report Type: Report from Study
  Country: BR (occurrence: BR)
  Receive Date: 20140725
  Receipt Date: 20140812
  Transmission Date: 20150326
  Serious: Yes (Other)
  Sender: FDA-Public Use
  Company Number: PHHY2014BR091580

PATIENT
  Sex: Male

DRUGS (3)
  1. MONOCORDIL [Concomitant]
     Active Substance: ISOSORBIDE MONONITRATE
     Indication: VASOCONSTRICTION
     Dosage: 2 TABLETS (20 MG) A DAY
     Route: 048
     Dates: start: 2011
  2. DIOVAN [Suspect]
     Active Substance: VALSARTAN
     Indication: HYPERTENSION
     Dosage: 1 TABLET (320 MG) DAILY
     Route: 048
  3. CLOPIDOGREL [Concomitant]
     Active Substance: CLOPIDOGREL BISULFATE
     Indication: ANTICOAGULANT THERAPY
     Dosage: 1 TABLET (75 MG) DAILY
     Route: 048
     Dates: start: 201206

REACTIONS (3)
  - Diabetes mellitus [Unknown]
  - Chest pain [Unknown]
  - Arterial occlusive disease [Recovered/Resolved]
